FAERS Safety Report 11130594 (Version 1)
Quarter: 2015Q2

REPORT INFORMATION
  Report Type: Spontaneous
  Country: US (occurrence: None)
  Receive Date: 20150519
  Receipt Date: 20150519
  Transmission Date: 20150821
  Serious: Yes (Other)
  Sender: FDA-Public Use
  Company Number: ADR-2015-00963

PATIENT
  Age: 23 Year
  Sex: Male

DRUGS (1)
  1. BACLOFEN. [Suspect]
     Active Substance: BACLOFEN
     Indication: MUSCLE SPASTICITY

REACTIONS (6)
  - Malaise [None]
  - Nausea [None]
  - Unresponsive to stimuli [None]
  - Overdose [None]
  - Vomiting [None]
  - Device dislocation [None]

NARRATIVE: CASE EVENT DATE: 20150511
